FAERS Safety Report 13402895 (Version 1)
Quarter: 2017Q2

REPORT INFORMATION
  Report Type: Spontaneous
  Country: US (occurrence: US)
  Receive Date: 20170404
  Receipt Date: 20170404
  Transmission Date: 20170830
  Serious: Yes (Hospitalization)
  Sender: FDA-Public Use
  Company Number: US-ROCHE-1752700

PATIENT
  Age: 61 Year
  Sex: Female

DRUGS (2)
  1. PEGYLATED LIPOSOMAL DOXORUBICIN [Concomitant]
     Active Substance: DOXORUBICIN
     Indication: OVARIAN CANCER
  2. AVASTIN [Suspect]
     Active Substance: BEVACIZUMAB
     Indication: OVARIAN CANCER
     Dosage: 8 CYCLES
     Route: 065

REACTIONS (2)
  - Headache [Recovering/Resolving]
  - Hypertensive crisis [Recovering/Resolving]
